FAERS Safety Report 13472527 (Version 1)
Quarter: 2017Q2

REPORT INFORMATION
  Report Type: Spontaneous
  Country: CH (occurrence: CY)
  Receive Date: 20170424
  Receipt Date: 20170424
  Transmission Date: 20170830
  Serious: Yes (Hospitalization)
  Sender: FDA-Public Use
  Company Number: CH-LPDUSPRD-20170441

PATIENT
  Age: 73 Year
  Sex: Male
  Weight: 61 kg

DRUGS (7)
  1. SIMVASTATIN. [Concomitant]
     Active Substance: SIMVASTATIN
     Dosage: 20MG
     Route: 048
  2. BISOPROLOL [Concomitant]
     Active Substance: BISOPROLOL
     Dosage: 5MG
     Route: 048
  3. SPIROLON [Concomitant]
     Dosage: 2.5MG
     Route: 048
  4. ASA [Concomitant]
     Active Substance: ASPIRIN
     Dosage: 150MG
     Route: 048
  5. ENTRESTO [Concomitant]
     Active Substance: SACUBITRIL\VALSARTAN
     Dosage: 2 X 125
     Route: 048
  6. FERINJECT [Suspect]
     Active Substance: FERRIC CARBOXYMALTOSE
     Dosage: 1 GM IN 250 ML NORMAL SALINE
     Route: 041
     Dates: start: 20170331, end: 2017
  7. GREPID [Concomitant]
     Active Substance: CLOPIDOGREL BESILATE
     Dosage: 75MG
     Route: 048

REACTIONS (2)
  - Pyrexia [Recovered/Resolved]
  - Asthenia [Recovered/Resolved]

NARRATIVE: CASE EVENT DATE: 20170401
